FAERS Safety Report 20263924 (Version 1)
Quarter: 2021Q4

REPORT INFORMATION
  Report Type: Spontaneous
  Country: US (occurrence: None)
  Receive Date: 20211230
  Receipt Date: 20211230
  Transmission Date: 20220303
  Serious: No
  Sender: FDA-Public Use
  Company Number: None

PATIENT
  Age: 79 Year
  Sex: Female
  Weight: 56.25 kg

DRUGS (7)
  1. XGEVA [Suspect]
     Active Substance: DENOSUMAB
     Indication: Bone disorder
     Dosage: OTHER FREQUENCY : ONCE A MONTH;?
     Route: 001
     Dates: start: 20190102, end: 20210420
  2. TAGRISSO [Concomitant]
     Active Substance: OSIMERTINIB
  3. HYDROCHLORITHIZIDE [Concomitant]
  4. FISH OIL [Concomitant]
     Active Substance: FISH OIL
  5. VITAMIN D3 [Concomitant]
     Active Substance: CHOLECALCIFEROL
  6. ASPIRIN [Concomitant]
     Active Substance: ASPIRIN
  7. VITAMINS [Concomitant]
     Active Substance: VITAMINS

REACTIONS (3)
  - Gingival swelling [None]
  - Tooth extraction [None]
  - Osteonecrosis of jaw [None]

NARRATIVE: CASE EVENT DATE: 20211105
